FAERS Safety Report 9172322 (Version 1)
Quarter: 2013Q1

REPORT INFORMATION
  Report Type: Report from Study
  Country: US (occurrence: US)
  Receive Date: 20130319
  Receipt Date: 20130319
  Transmission Date: 20140127
  Serious: Yes (Life-Threatening)
  Sender: FDA-Public Use
  Company Number: US-009507513-1303USA008061

PATIENT
  Sex: Female

DRUGS (4)
  1. BOCEPREVIR [Suspect]
     Indication: CHRONIC HEPATITIS C
     Dosage: UNK
  2. PEGASYS [Suspect]
     Indication: CHRONIC HEPATITIS C
     Dosage: 180 MICROGRAM, QW
     Route: 058
     Dates: start: 20120818
  3. RIBASPHERE [Suspect]
     Indication: CHRONIC HEPATITIS C
     Dosage: 1200 MG, QD
     Route: 048
     Dates: start: 20120818
  4. RIBASPHERE [Suspect]
     Dosage: 600 MG, QD
     Route: 048

REACTIONS (7)
  - Dyspnoea [Unknown]
  - Weight increased [Unknown]
  - Memory impairment [Unknown]
  - White blood cell count decreased [Unknown]
  - Thyroid function test abnormal [Unknown]
  - Anaemia [Unknown]
  - Red blood cell count decreased [Unknown]
